FAERS Safety Report 5207863-0 (Version None)
Quarter: 2007Q1

REPORT INFORMATION
  Report Type: 
  Country: None (occurrence: None)
  Receive Date: 20070112
  Receipt Date: 20070109
  Transmission Date: 20070707
  Serious: Yes (Other)
  Sender: FDA-Public Use
  Company Number: FR-PFIZER INC-2007002539

PATIENT

DRUGS (1)
  1. TAHOR [Suspect]

REACTIONS (1)
  - FOLLICULITIS [None]
